FAERS Safety Report 6052445-4 (Version None)
Quarter: 2009Q1

REPORT INFORMATION
  Report Type: 
  Country: None (occurrence: None)
  Receive Date: 20090121
  Receipt Date: 20090113
  Transmission Date: 20090719
  Serious: Yes (Other)
  Sender: FDA-Public Use
  Company Number: CERZ-1000481

PATIENT
  Age: 60 Year
  Sex: Male
  Weight: 150 kg

DRUGS (2)
  1. CEREZYME [Suspect]
     Indication: GAUCHER'S DISEASE
     Dosage: 60 U/KG, INTRAVENOUS; 30 U/KG, INTRAVENOUS
     Route: 042
     Dates: start: 20071101, end: 20081201
  2. CEREZYME [Suspect]
     Indication: GAUCHER'S DISEASE
     Dosage: 60 U/KG, INTRAVENOUS; 30 U/KG, INTRAVENOUS
     Route: 042
     Dates: start: 20081201

REACTIONS (3)
  - BONE PAIN [None]
  - DRUG INEFFECTIVE [None]
  - TREMOR [None]
